FAERS Safety Report 14904215 (Version 3)
Quarter: 2018Q2

REPORT INFORMATION
  Report Type: Spontaneous
  Country: GB (occurrence: GB)
  Receive Date: 20180516
  Receipt Date: 20180524
  Transmission Date: 20180711
  Serious: Yes (Hospitalization, Other)
  Sender: FDA-Public Use
  Company Number: GB-BIOGEN-2018BI00576880

PATIENT
  Sex: Female

DRUGS (1)
  1. TECFIDERA [Suspect]
     Active Substance: DIMETHYL FUMARATE
     Indication: PRODUCT USED FOR UNKNOWN INDICATION
     Dosage: MAINTENANCE DOSE
     Route: 048

REACTIONS (6)
  - Pericardial mass [Unknown]
  - Dyspnoea [Unknown]
  - Cardiac discomfort [Unknown]
  - Hip fracture [Unknown]
  - Pericardial effusion [Unknown]
  - Lung neoplasm malignant [Unknown]
